FAERS Safety Report 19423770 (Version 1)
Quarter: 2021Q2

REPORT INFORMATION
  Report Type: Spontaneous
  Country: SE (occurrence: SE)
  Receive Date: 20210616
  Receipt Date: 20210616
  Transmission Date: 20210717
  Serious: Yes (Other)
  Sender: FDA-Public Use
  Company Number: SE-ROCHE-2850758

PATIENT
  Age: 43 Year
  Sex: Female
  Weight: 76 kg

DRUGS (6)
  1. PAROXETINE. [Concomitant]
     Active Substance: PAROXETINE
  2. ENALAPRIL [Concomitant]
     Active Substance: ENALAPRIL
     Dates: start: 2008
  3. AMIAS [Concomitant]
     Active Substance: CANDESARTAN CILEXETIL
     Dosage: 32 MG
     Dates: start: 2007
  4. MABTHERA [Suspect]
     Active Substance: RITUXIMAB
     Dosage: INFUSION 2 TILLFALLET
     Route: 065
     Dates: start: 20200831, end: 20200831
  5. MABTHERA [Suspect]
     Active Substance: RITUXIMAB
     Indication: IGM NEPHROPATHY
     Dosage: INFUSION 1 TILLFALLET
     Route: 065
     Dates: start: 20200817, end: 20200817
  6. LEVAXIN [Concomitant]
     Active Substance: LEVOTHYROXINE SODIUM
     Dosage: 100 MG

REACTIONS (3)
  - Vocal cord inflammation [Unknown]
  - Cough [Unknown]
  - Pyrexia [Unknown]

NARRATIVE: CASE EVENT DATE: 202010
